FAERS Safety Report 8770072 (Version 1)
Quarter: 2012Q4

REPORT INFORMATION
  Report Type: 
  Country: IE (occurrence: IE)
  Receive Date: 20120906
  Receipt Date: 20120906
  Transmission Date: 20130627
  Serious: Yes (Other)
  Sender: FDA-Public Use
  Company Number: IE-ASTRAZENECA-2012SE65531

PATIENT
  Age: 65 Year
  Sex: Female

DRUGS (9)
  1. SYMBICORT TURBUHALER [Concomitant]
     Indication: ASTHMA
     Dosage: 1 PUFF, TWO TIMES A DAY
     Route: 055
     Dates: start: 20101123
  2. VENTOLINE EVOHALER [Concomitant]
     Indication: ASTHMA
     Dosage: ONE OR TWO PUFFS, AS REQUIRED
     Dates: start: 20050224
  3. PARALIEF [Concomitant]
     Indication: ANALGESIC THERAPY
     Dosage: TWO TABLETS UP TO FOUR TIMES A DAY, AS REQUIRED
     Dates: start: 20101109
  4. ANXICALM [Concomitant]
     Indication: MUSCLE RELAXANT THERAPY
     Dosage: ONE DF, AT NIGHT, AS REQUIRED
     Dates: start: 20090210
  5. TENORMIN [Concomitant]
     Indication: HYPERTENSION
     Route: 048
     Dates: start: 20100428
  6. SALAZOPYRIN [Concomitant]
     Indication: ARTHRITIS
     Dates: start: 20050420
  7. VIMOVO [Suspect]
     Indication: ANALGESIC THERAPY
     Dosage: 500 MG/20 MG, ONE TABLET TWICE DAILY
     Route: 048
     Dates: start: 20120724, end: 20120814
  8. AVAMYS [Concomitant]
     Indication: HYPERSENSITIVITY
     Dosage: 1 PUFF, TWO TIMES A DAY IN BOTH NOSTRILS
     Route: 045
     Dates: start: 20101014, end: 20120724
  9. NUELIN SA [Concomitant]
     Indication: ASTHMA
     Dates: start: 20050315

REACTIONS (2)
  - Lethargy [Recovered/Resolved]
  - Depressed mood [Recovered/Resolved]
